FAERS Safety Report 5843237-7 (Version None)
Quarter: 2008Q3

REPORT INFORMATION
  Report Type: 
  Country: None (occurrence: None)
  Receive Date: 20080813
  Receipt Date: 20080806
  Transmission Date: 20090109
  Serious: Yes (Hospitalization, Other)
  Sender: FDA-Public Use
  Company Number: PHBS2007IL13889

PATIENT
  Age: 82 Year
  Sex: Male

DRUGS (11)
  1. DIOVAN [Suspect]
     Indication: HYPERTENSION
     Dosage: 160 MG/DAY
     Route: 048
  2. DIOVAN [Suspect]
     Dosage: 80 MG/DAY
     Route: 048
  3. DIOVAN [Suspect]
     Dosage: 80 MG EVERY MORNING
     Route: 048
     Dates: start: 20080401
  4. DIOVAN [Suspect]
     Dosage: ADDITIONAL DIOVAN DOSE ADDED IN EVENING
     Route: 048
  5. RHYTHMEX [Concomitant]
  6. VASODIP [Concomitant]
  7. CARDURAL [Concomitant]
  8. DILATAM [Concomitant]
  9. NOVONORM [Concomitant]
  10. GLUCOPHAGE [Concomitant]
  11. HYDRALAZINE HCL [Concomitant]

REACTIONS (4)
  - DEPRESSION [None]
  - HYPOGLYCAEMIA [None]
  - HYPONATRAEMIA [None]
  - PNEUMONIA [None]
